FAERS Safety Report 13142338 (Version 14)
Quarter: 2017Q4

REPORT INFORMATION
  Report Type: Spontaneous
  Country: US (occurrence: US)
  Receive Date: 20170123
  Receipt Date: 20171207
  Transmission Date: 20180320
  Serious: Yes (Death, Hospitalization)
  Sender: FDA-Public Use
  Company Number: US-ACTELION-A-US2017-148371

PATIENT
  Age: 53 Year
  Sex: Female
  Weight: 77.98 kg

DRUGS (18)
  1. VELETRI [Suspect]
     Active Substance: EPOPROSTENOL
     Indication: PULMONARY ARTERIAL HYPERTENSION
     Dosage: 38 NG/KG, PER MIN
     Route: 042
  2. SPIRONOLACTONE. [Concomitant]
     Active Substance: SPIRONOLACTONE
  3. URSODIOL. [Concomitant]
     Active Substance: URSODIOL
  4. MAGNESIUM [Concomitant]
     Active Substance: MAGNESIUM
  5. LASIX [Concomitant]
     Active Substance: FUROSEMIDE
  6. DIFLUCAN [Concomitant]
     Active Substance: FLUCONAZOLE
  7. OPSUMIT [Suspect]
     Active Substance: MACITENTAN
     Indication: PULMONARY ARTERIAL HYPERTENSION
     Dosage: 10 MG, QD
     Route: 048
     Dates: start: 20150421, end: 20171114
  8. KCL [Concomitant]
     Active Substance: POTASSIUM CHLORIDE
  9. METOLAZONE. [Concomitant]
     Active Substance: METOLAZONE
  10. ATENOLOL. [Concomitant]
     Active Substance: ATENOLOL
  11. LORAZEPAM. [Concomitant]
     Active Substance: LORAZEPAM
  12. CIALIS [Concomitant]
     Active Substance: TADALAFIL
  13. GABAPENTIN. [Concomitant]
     Active Substance: GABAPENTIN
  14. VELETRI [Suspect]
     Active Substance: EPOPROSTENOL
     Dosage: UNK
     Route: 042
     Dates: start: 20160718
  15. ADCIRCA [Concomitant]
     Active Substance: TADALAFIL
  16. DIGOXIN. [Concomitant]
     Active Substance: DIGOXIN
  17. PRILOSEC [Concomitant]
     Active Substance: OMEPRAZOLE MAGNESIUM
  18. CULTURELLE [Concomitant]
     Active Substance: LACTOBACILLUS RHAMNOSUS

REACTIONS (19)
  - Atrial fibrillation [Not Recovered/Not Resolved]
  - Oedema [Unknown]
  - Malaise [Unknown]
  - Septic shock [Unknown]
  - Hypotension [Unknown]
  - Death [Fatal]
  - Pleural effusion [Unknown]
  - Fluid retention [Unknown]
  - Renal disorder [Unknown]
  - Tachycardia [Not Recovered/Not Resolved]
  - Dyspnoea [Unknown]
  - Weight decreased [Unknown]
  - General physical health deterioration [Unknown]
  - Cardiac ablation [Unknown]
  - Pericardial effusion [Unknown]
  - Pulmonary oedema [Unknown]
  - Hypoventilation [Unknown]
  - Pulmonary arterial pressure increased [Unknown]
  - Palpitations [Unknown]

NARRATIVE: CASE EVENT DATE: 20170905
